FAERS Safety Report 12799267 (Version 1)
Quarter: 2016Q3

REPORT INFORMATION
  Report Type: Spontaneous
  Country: US (occurrence: US)
  Receive Date: 20160930
  Receipt Date: 20160930
  Transmission Date: 20161109
  Serious: No
  Sender: FDA-Public Use
  Company Number: US-TEVA-689478USA

PATIENT
  Age: 38 Year
  Sex: Female
  Weight: 86.26 kg

DRUGS (1)
  1. COPAXONE [Suspect]
     Active Substance: GLATIRAMER ACETATE
     Indication: MULTIPLE SCLEROSIS
     Route: 058
     Dates: start: 201606

REACTIONS (13)
  - Fatigue [Unknown]
  - Throat irritation [Unknown]
  - Dizziness [Unknown]
  - Drug dose omission [Unknown]
  - Oropharyngeal pain [Unknown]
  - Cough [Unknown]
  - Malaise [Unknown]
  - Headache [Unknown]
  - Sneezing [Unknown]
  - Adverse event [Unknown]
  - Upper-airway cough syndrome [Unknown]
  - Nasopharyngitis [Unknown]
  - Bronchitis [Unknown]

NARRATIVE: CASE EVENT DATE: 201607
